FAERS Safety Report 11650755 (Version 1)
Quarter: 2015Q4

REPORT INFORMATION
  Report Type: Spontaneous
  Country: CA (occurrence: CA)
  Receive Date: 20151021
  Receipt Date: 20151021
  Transmission Date: 20160304
  Serious: Yes (Disabling)
  Sender: FDA-Public Use
  Company Number: CA-TEVA-601803ACC

PATIENT
  Age: 80 Year
  Sex: Male
  Weight: 83.99 kg

DRUGS (10)
  1. BICALUTAMIDE. [Suspect]
     Active Substance: BICALUTAMIDE
     Indication: PRODUCT USED FOR UNKNOWN INDICATION
     Dosage: 50 MILLIGRAM DAILY;
     Route: 048
  2. DIAMICRON MR [Concomitant]
     Active Substance: GLICLAZIDE
  3. IRON [Concomitant]
     Active Substance: IRON
  4. JANUVIA [Concomitant]
     Active Substance: SITAGLIPTIN PHOSPHATE
  5. SANDOZ AMLODIPINE [Concomitant]
     Active Substance: AMLODIPINE MALEATE
  6. INSULIN [Concomitant]
     Active Substance: INSULIN NOS
  7. METFORMIN [Concomitant]
     Active Substance: METFORMIN HYDROCHLORIDE
  8. TRELSTAR [Suspect]
     Active Substance: TRIPTORELIN PAMOATE
     Indication: PROSTATE CANCER
     Dosage: 3.75 MILLIGRAM DAILY;
     Route: 030
  9. MULTIVITAMINE(S) [Concomitant]
  10. OLMETEC PLUS [Concomitant]
     Active Substance: HYDROCHLOROTHIAZIDE\OLMESARTAN MEDOXOMIL

REACTIONS (7)
  - Fatigue [Not Recovered/Not Resolved]
  - Respiratory rate increased [Not Recovered/Not Resolved]
  - Pallor [Not Recovered/Not Resolved]
  - Abasia [Not Recovered/Not Resolved]
  - Pain in extremity [Not Recovered/Not Resolved]
  - Weight decreased [Not Recovered/Not Resolved]
  - Muscle atrophy [Not Recovered/Not Resolved]
